FAERS Safety Report 10636572 (Version 1)
Quarter: 2014Q4

REPORT INFORMATION
  Report Type: Spontaneous
  Country: IN (occurrence: IN)
  Receive Date: 20141208
  Receipt Date: 20141208
  Transmission Date: 20150529
  Serious: Yes (Hospitalization, Other)
  Sender: FDA-Public Use
  Company Number: IN-AUROBINDO-AUR-APL-2014-12797

PATIENT
  Age: 55 Year
  Sex: Male

DRUGS (6)
  1. RISPERIDONE 2MG [Suspect]
     Active Substance: RISPERIDONE
     Dosage: 4 MG, (HIKED 1 MG EVERY 3 DAYS)
     Route: 065
  2. LITHIUM CARBONATE. [Suspect]
     Active Substance: LITHIUM CARBONATE
     Indication: MOOD SWINGS
     Dosage: 900 MG, UNK
     Route: 065
  3. LITHIUM CARBONATE. [Suspect]
     Active Substance: LITHIUM CARBONATE
     Dosage: 1200 MG, UNK
     Route: 065
  4. RISPERIDONE 2MG [Suspect]
     Active Substance: RISPERIDONE
     Dosage: 7 MG, UNK
     Route: 065
  5. RISPERIDONE 2MG [Suspect]
     Active Substance: RISPERIDONE
     Dosage: 6 MG, UNK
     Route: 065
  6. RISPERIDONE 2MG [Suspect]
     Active Substance: RISPERIDONE
     Indication: PSYCHOTIC DISORDER
     Dosage: 2 MG, UNK
     Route: 065

REACTIONS (6)
  - Personality change [Recovered/Resolved]
  - Euphoric mood [Recovered/Resolved]
  - Psychomotor hyperactivity [Recovered/Resolved]
  - Mental impairment [Recovered/Resolved]
  - Self esteem inflated [Recovered/Resolved]
  - Mania [Recovered/Resolved]
